FAERS Safety Report 5874692-4 (Version None)
Quarter: 2008Q3

REPORT INFORMATION
  Report Type: 
  Country: None (occurrence: None)
  Receive Date: 20080909
  Receipt Date: 20080901
  Transmission Date: 20090109
  Serious: Yes (Other)
  Sender: FDA-Public Use
  Company Number: DE-JNJFOC-20080900757

PATIENT
  Age: 54 Year
  Sex: Female

DRUGS (3)
  1. RISPERDAL CONSTA [Suspect]
     Route: 030
  2. RISPERDAL CONSTA [Suspect]
     Indication: DRUG USE FOR UNKNOWN INDICATION
     Route: 030
  3. BELOK ZOC MITE [Concomitant]
     Route: 048

REACTIONS (3)
  - CARDIAC DISORDER [None]
  - DYSPNOEA [None]
  - WEIGHT INCREASED [None]
